FAERS Safety Report 22947765 (Version 3)
Quarter: 2024Q2

REPORT INFORMATION
  Report Type: Report from Study
  Country: US (occurrence: US)
  Receive Date: 20230915
  Receipt Date: 20240430
  Transmission Date: 20240715
  Serious: Yes (Other)
  Sender: FDA-Public Use
  Company Number: US-ABBVIE-5401235

PATIENT
  Age: 72 Year
  Sex: Female
  Weight: 83 kg

DRUGS (3)
  1. SKYRIZI [Suspect]
     Active Substance: RISANKIZUMAB-RZAA
     Indication: Crohn^s disease
     Route: 058
     Dates: start: 20221118
  2. SKYRIZI [Suspect]
     Active Substance: RISANKIZUMAB-RZAA
     Dosage: LAST ADMIN DATE 2022
     Route: 058
     Dates: start: 20220923
  3. REMICADE [Suspect]
     Active Substance: INFLIXIMAB
     Indication: Product used for unknown indication
     Route: 065

REACTIONS (18)
  - Hepatic cirrhosis [Not Recovered/Not Resolved]
  - Albumin globulin ratio increased [Unknown]
  - Blood creatinine increased [Unknown]
  - Glomerular filtration rate decreased [Unknown]
  - Blood sodium increased [Unknown]
  - Cyst [Unknown]
  - Blood potassium decreased [Unknown]
  - Hepatic cirrhosis [Unknown]
  - Blood triglycerides increased [Unknown]
  - Diarrhoea [Not Recovered/Not Resolved]
  - Nephrolithiasis [Unknown]
  - Pelvic cyst [Unknown]
  - Pain [Unknown]
  - Scar [Unknown]
  - Blood magnesium decreased [Unknown]
  - Dyspnoea [Unknown]
  - Hepatic enzyme decreased [Unknown]
  - Liver disorder [Unknown]

NARRATIVE: CASE EVENT DATE: 20230627
